FAERS Safety Report 7802900-9 (Version None)
Quarter: 2011Q4

REPORT INFORMATION
  Report Type: 
  Country: None (occurrence: None)
  Receive Date: 20111007
  Receipt Date: 20111003
  Transmission Date: 20120403
  Serious: No
  Sender: FDA-Public Use
  Company Number: US-PFIZER INC-2011236212

PATIENT
  Sex: Female

DRUGS (6)
  1. NASONEX [Suspect]
     Indication: BRONCHITIS
  2. ORAPRED [Suspect]
     Indication: BRONCHITIS
  3. NASONEX [Suspect]
     Indication: SINUSITIS
     Dosage: UNK
  4. ZITHROMAX [Suspect]
     Indication: SINUSITIS
     Dosage: UNK MG, UNK
  5. ZITHROMAX [Suspect]
     Indication: BRONCHITIS
  6. ORAPRED [Suspect]
     Indication: SINUSITIS
     Dosage: 30 MG, DAILY FOR THE FIRST THREE DAYS AND 15 MG FOR THE NEXT TWO DAYS
     Dates: start: 20110101

REACTIONS (1)
  - DRUG INEFFECTIVE [None]
